FAERS Safety Report 7701475-2 (Version None)
Quarter: 2011Q3

REPORT INFORMATION
  Report Type: 
  Country: None (occurrence: None)
  Receive Date: 20110822
  Receipt Date: 20110817
  Transmission Date: 20111222
  Serious: Yes (Other)
  Sender: FDA-Public Use
  Company Number: US-PFIZER INC-2011189972

PATIENT
  Sex: Female
  Weight: 47.2 kg

DRUGS (1)
  1. ESTRING [Suspect]
     Indication: HORMONE REPLACEMENT THERAPY
     Dosage: UNK
     Route: 067
     Dates: start: 20110812, end: 20110812

REACTIONS (3)
  - BURNING SENSATION [None]
  - PRURITUS [None]
  - RASH [None]
